FAERS Safety Report 12524494 (Version 11)
Quarter: 2017Q3

REPORT INFORMATION
  Report Type: Spontaneous
  Country: IT (occurrence: IT)
  Receive Date: 20160704
  Receipt Date: 20170728
  Transmission Date: 20171127
  Serious: Yes (Life-Threatening, Hospitalization, Other)
  Sender: FDA-Public Use
  Company Number: IT-TAKEDA-2016MPI005550

PATIENT
  Age: 75 Year
  Sex: Male
  Weight: 70 kg

DRUGS (52)
  1. LYRICA [Concomitant]
     Active Substance: PREGABALIN
     Indication: BONE PAIN
     Dosage: 75 MG, BID
     Route: 048
     Dates: start: 20160513
  2. NALOXONE [Concomitant]
     Active Substance: NALOXONE
     Indication: BONE PAIN
     Dosage: 5 MG, BID
     Route: 048
     Dates: start: 20160407, end: 20160419
  3. CLEXANE [Concomitant]
     Active Substance: ENOXAPARIN SODIUM
     Dosage: 6000 IU, BID
     Route: 058
     Dates: start: 20160614, end: 20160617
  4. DIBASE [Concomitant]
     Active Substance: CHOLECALCIFEROL
     Indication: BONE LESION
     Dosage: 100000 IU, MONTHLY
     Route: 048
     Dates: start: 20160530
  5. COUMADIN [Concomitant]
     Active Substance: WARFARIN SODIUM
     Indication: PULMONARY EMBOLISM
     Dosage: UNK
     Route: 048
     Dates: start: 20160615, end: 20160624
  6. VELLOFENT [Concomitant]
     Indication: BONE PAIN
     Dosage: 133 MG, UNK
     Route: 060
     Dates: start: 20160419, end: 20160722
  7. CLEXANE [Concomitant]
     Active Substance: ENOXAPARIN SODIUM
     Indication: THROMBOSIS PROPHYLAXIS
     Dosage: 4000 IU, QD
     Route: 058
     Dates: start: 20160330, end: 20160419
  8. OMEPRAZOLE. [Concomitant]
     Active Substance: OMEPRAZOLE
     Indication: GASTROINTESTINAL DISORDER THERAPY
  9. TAZOCIN [Concomitant]
     Active Substance: PIPERACILLIN SODIUM\TAZOBACTAM SODIUM
     Indication: PYREXIA
     Dosage: 4.5 G, TID
     Route: 042
     Dates: start: 20160604, end: 20160626
  10. PREDNISONE. [Suspect]
     Active Substance: PREDNISONE
     Indication: PLASMA CELL MYELOMA
     Dosage: 110 MG, QD
     Route: 048
     Dates: start: 20160531, end: 20160602
  11. PREDNISONE. [Suspect]
     Active Substance: PREDNISONE
     Dosage: 70 MG, UNK
     Route: 048
     Dates: start: 20160729, end: 20160731
  12. MELPHALAN. [Suspect]
     Active Substance: MELPHALAN
     Dosage: 10 MG, UNK
     Route: 048
     Dates: start: 20160908, end: 20170115
  13. MOVICOL [Concomitant]
     Active Substance: POLYETHYLENE GLYCOL 3350\POTASSIUM CHLORIDE\SODIUM BICARBONATE\SODIUM CHLORIDE
     Indication: ANTIFUNGAL PROPHYLAXIS
     Dosage: 15 MG, BID
     Route: 048
     Dates: start: 20160330
  14. OXYCODON [Concomitant]
     Active Substance: OXYCODONE
     Dosage: 20 MG, BID
     Route: 048
     Dates: start: 20160420, end: 20160728
  15. PANTOPRAZOLE                       /01263204/ [Concomitant]
     Active Substance: PANTOPRAZOLE SODIUM
     Dosage: 40 MG, QD
     Route: 048
     Dates: start: 20160530, end: 20160728
  16. FOLIC ACID. [Concomitant]
     Active Substance: FOLIC ACID
     Indication: VITAMIN SUPPLEMENTATION
     Dosage: 5 MG, QD
     Route: 048
     Dates: start: 20160530
  17. VALGANCICLOVIR                     /01542202/ [Concomitant]
     Indication: ANTIVIRAL PROPHYLAXIS
     Dosage: 900 MG, QD
     Route: 048
     Dates: start: 20160720
  18. VENITAL [Concomitant]
     Active Substance: HUMAN IMMUNOGLOBULIN G
     Indication: METAPNEUMOVIRUS INFECTION
     Dosage: 25 G, QD
     Route: 042
     Dates: start: 20160630, end: 20160630
  19. CANCIDAS [Concomitant]
     Active Substance: CASPOFUNGIN ACETATE
     Dosage: 70 MG, UNK
     Route: 042
     Dates: start: 20160623, end: 20160623
  20. VELCADE [Suspect]
     Active Substance: BORTEZOMIB
     Indication: PLASMA CELL MYELOMA
     Dosage: 2.38 MG, 1/WEEK
     Route: 058
     Dates: start: 20160530, end: 20160603
  21. ZOMETA [Concomitant]
     Active Substance: ZOLEDRONIC ACID
     Indication: PROPHYLAXIS
     Dosage: 4 MG, MONTHLY
     Route: 042
     Dates: start: 20160406
  22. OXYCODON [Concomitant]
     Active Substance: OXYCODONE
     Indication: BONE PAIN
     Dosage: 10 MG, BID
     Route: 048
     Dates: start: 20160407, end: 20160419
  23. CLEXANE [Concomitant]
     Active Substance: ENOXAPARIN SODIUM
     Indication: PULMONARY EMBOLISM
     Dosage: 4000 IU, QD
     Route: 058
     Dates: start: 20160421, end: 20160728
  24. EFFENTORA [Concomitant]
     Active Substance: FENTANYL CITRATE
     Indication: BACK PAIN
     Dosage: 400 ?G, UNK
     Route: 048
     Dates: start: 20160513, end: 20160728
  25. ACYCLOVIR                          /00587301/ [Concomitant]
     Active Substance: ACYCLOVIR
     Indication: ANTIVIRAL PROPHYLAXIS
     Dosage: 800 MG, QD
     Route: 048
     Dates: start: 20160530, end: 20160728
  26. VELCADE [Suspect]
     Active Substance: BORTEZOMIB
     Dosage: 2.09 MG, UNK
     Route: 058
     Dates: start: 20160728, end: 20160804
  27. MELPHALAN. [Suspect]
     Active Substance: MELPHALAN
     Dosage: 10 MG, UNK
     Route: 048
     Dates: start: 20160728, end: 20160731
  28. NALOXONE [Concomitant]
     Active Substance: NALOXONE
     Dosage: 10 MG, BID
     Route: 048
     Dates: start: 20160420, end: 20160728
  29. CLEXANE [Concomitant]
     Active Substance: ENOXAPARIN SODIUM
     Dosage: 7000 IU, BID
     Route: 058
     Dates: start: 20160625, end: 20160719
  30. CLEXANE [Concomitant]
     Active Substance: ENOXAPARIN SODIUM
     Dosage: 6000 IU, BID
     Route: 058
     Dates: start: 20160720
  31. OMEPRAZOLE. [Concomitant]
     Active Substance: OMEPRAZOLE
     Indication: PROPHYLAXIS
     Dosage: 20 MG, QD
     Route: 048
     Dates: start: 20160330, end: 20160330
  32. SOLDESAM POMATA [Concomitant]
     Indication: BACK PAIN
     Dosage: 4 MG, BID
     Route: 048
     Dates: start: 20160513, end: 20160530
  33. PANTOPRAZOLE                       /01263204/ [Concomitant]
     Active Substance: PANTOPRAZOLE SODIUM
     Indication: GASTROINTESTINAL DISORDER THERAPY
     Dosage: 20 MG, QD
     Route: 048
     Dates: start: 20160728
  34. MERREM [Concomitant]
     Active Substance: MEROPENEM
     Indication: PYREXIA
     Dosage: 2 G, TID
     Route: 042
     Dates: start: 20160626, end: 20160720
  35. VALGANCICLOVIR                     /01542202/ [Concomitant]
     Dosage: 900 MG, QD
     Route: 048
     Dates: start: 20160711, end: 20161006
  36. GANCICLOVIR. [Concomitant]
     Active Substance: GANCICLOVIR
     Dosage: 300 MG, QD
     Route: 042
     Dates: start: 20160627, end: 20160711
  37. DELTACORTENE [Concomitant]
     Active Substance: PREDNISONE
     Indication: HYPOTENSION
     Dosage: 50 MG, QD
     Route: 048
     Dates: start: 20160609, end: 20160628
  38. LEVOXACIN [Concomitant]
     Active Substance: LEVOFLOXACIN
     Indication: PYREXIA
     Dosage: 750 MG, QD
     Route: 042
     Dates: start: 20160620, end: 20160626
  39. VELCADE [Suspect]
     Active Substance: BORTEZOMIB
     Dosage: 2.18 MG, UNK
     Route: 058
     Dates: start: 20160818, end: 20170119
  40. DARATUMUMAB [Suspect]
     Active Substance: DARATUMUMAB
     Indication: PLASMA CELL MYELOMA
     Dosage: 1136 MG, 1/WEEK
     Route: 042
     Dates: start: 20160530, end: 20160530
  41. MELPHALAN. [Suspect]
     Active Substance: MELPHALAN
     Indication: PLASMA CELL MYELOMA
     Dosage: 16 MG, QD
     Route: 048
     Dates: start: 20160530, end: 20160602
  42. ACYCLOVIR                          /00587301/ [Concomitant]
     Active Substance: ACYCLOVIR
     Dosage: 800 MG, QD
     Route: 048
     Dates: start: 20161006
  43. ZEFFIX [Concomitant]
     Active Substance: LAMIVUDINE
     Indication: ANTIVIRAL PROPHYLAXIS
     Dosage: 100 MG, QD
     Route: 048
     Dates: start: 20160530
  44. ALLOPURINOL                        /00003302/ [Concomitant]
     Active Substance: ALLOPURINOL
     Indication: HYPERURICAEMIA
     Dosage: 300 MG, QD
     Route: 048
     Dates: start: 20160531, end: 20160609
  45. DIBASE [Concomitant]
     Active Substance: CHOLECALCIFEROL
     Indication: PROPHYLAXIS
  46. GANCICLOVIR. [Concomitant]
     Active Substance: GANCICLOVIR
     Indication: CYTOMEGALOVIRUS INFECTION
     Dosage: 350 MG, BID
     Route: 042
     Dates: start: 20160620, end: 20160626
  47. BACTRIM [Concomitant]
     Active Substance: SULFAMETHOXAZOLE\TRIMETHOPRIM
     Dosage: 960 MG, TID
     Route: 048
     Dates: start: 20160715
  48. PREDNISONE. [Suspect]
     Active Substance: PREDNISONE
     Dosage: 70 MG, UNK
     Route: 048
     Dates: start: 20160909, end: 20170115
  49. LYRICA [Concomitant]
     Active Substance: PREGABALIN
     Indication: BACK PAIN
     Dosage: 75 MG, BID
     Route: 048
     Dates: start: 20160419
  50. TARGIN [Concomitant]
     Active Substance: NALOXONE HYDROCHLORIDE\OXYCODONE HYDROCHLORIDE
     Indication: BACK PAIN
     Dosage: 20 MG, BID
     Route: 048
     Dates: start: 20160513, end: 20160728
  51. CANCIDAS [Concomitant]
     Active Substance: CASPOFUNGIN ACETATE
     Indication: PYREXIA
     Dosage: 50 MG, QD
     Route: 042
     Dates: start: 20160624, end: 20160713
  52. BACTRIM [Concomitant]
     Active Substance: SULFAMETHOXAZOLE\TRIMETHOPRIM
     Indication: INTERSTITIAL LUNG DISEASE
     Dosage: 1440 MG, QID
     Route: 042
     Dates: start: 20160626, end: 20160711

REACTIONS (9)
  - Interstitial lung disease [Recovering/Resolving]
  - Drug dose omission [Unknown]
  - Pulmonary embolism [Unknown]
  - Metapneumovirus infection [Recovered/Resolved]
  - Pyrexia [Recovered/Resolved]
  - Cytomegalovirus infection [Recovered/Resolved]
  - Acute respiratory failure [Recovered/Resolved]
  - Systemic inflammatory response syndrome [Recovered/Resolved]
  - Hypotension [Unknown]

NARRATIVE: CASE EVENT DATE: 20160603
